FAERS Safety Report 25741462 (Version 1)
Quarter: 2025Q3

REPORT INFORMATION
  Report Type: Spontaneous
  Country: US (occurrence: US)
  Receive Date: 20250829
  Receipt Date: 20250829
  Transmission Date: 20251021
  Serious: Yes (Other)
  Sender: TEVA
  Company Number: US-TEVA-VS-3365917

PATIENT

DRUGS (1)
  1. QVAR REDIHALER [Suspect]
     Active Substance: BECLOMETHASONE DIPROPIONATE
     Indication: Product used for unknown indication
     Route: 065
     Dates: start: 2024

REACTIONS (2)
  - Dyspnoea [Recovering/Resolving]
  - Product quality issue [Unknown]

NARRATIVE: CASE EVENT DATE: 20250101
